FAERS Safety Report 22131466 (Version 1)
Quarter: 2023Q1

REPORT INFORMATION
  Report Type: Spontaneous
  Country: US (occurrence: US)
  Receive Date: 20230323
  Receipt Date: 20230323
  Transmission Date: 20230418
  Serious: No
  Sender: FDA-Public Use
  Company Number: US-ALLERGAN-2306266US

PATIENT

DRUGS (1)
  1. VANIQA [Suspect]
     Active Substance: EFLORNITHINE HYDROCHLORIDE
     Indication: Hair growth abnormal

REACTIONS (3)
  - Condition aggravated [Unknown]
  - Hair growth abnormal [Unknown]
  - Drug ineffective [Unknown]
